FAERS Safety Report 7338762-6 (Version None)
Quarter: 2011Q1

REPORT INFORMATION
  Report Type: 
  Country: None (occurrence: None)
  Receive Date: 20110308
  Receipt Date: 20110223
  Transmission Date: 20110831
  Serious: Yes (Hospitalization, Other)
  Sender: FDA-Public Use
  Company Number: PHHY2011CH14716

PATIENT
  Age: 83 Year
  Sex: Female

DRUGS (13)
  1. PRAVASTATIN [Concomitant]
     Indication: MYOCARDIAL ISCHAEMIA
     Dosage: 20 MG/DAY
  2. OMEPRAZOLE [Concomitant]
     Dosage: 40 MG/DAY
  3. DIGOXIN [Suspect]
     Indication: CARDIAC FAILURE
     Dosage: 0.25 MG, 6 DAYS PER WEEK
     Dates: start: 20060301, end: 20110211
  4. LASILACTON [Concomitant]
     Indication: CARDIAC FAILURE
     Dosage: 1 DF/DAY
  5. ASPIRIN [Concomitant]
     Indication: MYOCARDIAL ISCHAEMIA
     Dosage: 300 MG/DAY
  6. LASIX [Concomitant]
     Indication: CARDIAC FAILURE
     Dosage: 120 MG/DAY
  7. SYMFONA [Concomitant]
     Dosage: 120 MG/DAY
  8. FOSAMAX [Concomitant]
     Dosage: 1 DF/DAY
  9. MAGNESIUM DIASPORAL [Concomitant]
     Dosage: 1 DF/DAY
  10. PERMAX [Suspect]
     Indication: PARKINSON'S DISEASE
     Dosage: 3 MG/DAY
  11. EMSELEX EXTENDED RELEASE [Suspect]
     Dosage: 7.5 MG/DAY
     Dates: end: 20110211
  12. MADOPAR [Suspect]
     Indication: PARKINSON'S DISEASE
     Dosage: 3 DF/DAY
  13. CALCIUM SANDOZ [Concomitant]
     Dosage: 1 DF/DAY

REACTIONS (4)
  - SINUS BRADYCARDIA [None]
  - HEART RATE DECREASED [None]
  - BLOOD PRESSURE DECREASED [None]
  - CONFUSIONAL STATE [None]
